FAERS Safety Report 25366786 (Version 1)
Quarter: 2025Q2

REPORT INFORMATION
  Report Type: Spontaneous
  Country: FR (occurrence: FR)
  Receive Date: 20250528
  Receipt Date: 20250528
  Transmission Date: 20250716
  Serious: Yes (Other)
  Sender: TEVA
  Company Number: None

PATIENT
  Age: 38 Year
  Sex: Male

DRUGS (2)
  1. PROPRANOLOL [Suspect]
     Active Substance: PROPRANOLOL HYDROCHLORIDE
     Indication: Wrong patient
     Route: 048
     Dates: start: 20250428, end: 20250428
  2. LOXAPINE [Suspect]
     Active Substance: LOXAPINE
     Indication: Wrong patient
     Route: 048
     Dates: start: 20250428, end: 20250428

REACTIONS (2)
  - Epilepsy [Recovered/Resolved]
  - Wrong patient [Recovered/Resolved]

NARRATIVE: CASE EVENT DATE: 20250428
